FAERS Safety Report 12683708 (Version 2)
Quarter: 2016Q3

REPORT INFORMATION
  Report Type: Spontaneous
  Country: PL (occurrence: PL)
  Receive Date: 20160825
  Receipt Date: 20160913
  Transmission Date: 20161109
  Serious: Yes (Other)
  Sender: FDA-Public Use
  Company Number: PL-JNJFOC-20160818434

PATIENT
  Sex: Male

DRUGS (2)
  1. RISPERDAL CONSTA [Suspect]
     Active Substance: RISPERIDONE
     Indication: SCHIZOPHRENIA
     Route: 065
  2. RISPERDAL CONSTA [Suspect]
     Active Substance: RISPERIDONE
     Indication: SCHIZOPHRENIA
     Dosage: PRIOR TO HOSPITALIZATION, WITHDRAWN BY THE PATIENT
     Route: 065

REACTIONS (3)
  - Schizophrenia [Recovered/Resolved]
  - Treatment noncompliance [Recovered/Resolved]
  - Overdose [Recovered/Resolved]
